FAERS Safety Report 9049779 (Version 1)
Quarter: 2013Q1

REPORT INFORMATION
  Report Type: Spontaneous
  Country: US (occurrence: US)
  Receive Date: 20130205
  Receipt Date: 20130205
  Transmission Date: 20140127
  Serious: Yes (Hospitalization)
  Sender: FDA-Public Use
  Company Number: US-BAYER-2013-014266

PATIENT
  Age: 16 Year
  Sex: Female
  Weight: 44.9 kg

DRUGS (2)
  1. YAZ [Suspect]
     Indication: MENSTRUAL CYCLE MANAGEMENT
     Dosage: UNK
     Dates: start: 201002, end: 201009
  2. AMOXICILLIN [Concomitant]

REACTIONS (5)
  - Cholelithiasis [None]
  - Cholecystitis chronic [None]
  - Abdominal pain upper [None]
  - Pain [None]
  - Off label use [None]
